FAERS Safety Report 10066450 (Version 1)
Quarter: 2014Q2

REPORT INFORMATION
  Report Type: Report from Study
  Country: US (occurrence: US)
  Receive Date: 20140408
  Receipt Date: 20140408
  Transmission Date: 20141212
  Serious: Yes (Other)
  Sender: FDA-Public Use
  Company Number: PHEH2014US006716

PATIENT
  Age: 19 Year
  Sex: Female
  Weight: 63.49 kg

DRUGS (7)
  1. TOBI PODHALER [Suspect]
     Indication: CYSTIC FIBROSIS
     Dosage: 112 MG, BID
     Route: 055
     Dates: start: 201312, end: 201312
  2. PULMOZYME [Concomitant]
     Dosage: UNK
  3. AZITHROMYCIN [Concomitant]
     Dosage: UNK
  4. VENTOLINE [Concomitant]
     Dosage: UNK
  5. SINGULAR [Concomitant]
     Dosage: UNK
  6. HYPERTONIC SALINE SOLUTION [Concomitant]
     Dosage: UNK
  7. ZENPEP [Concomitant]
     Dosage: UNK

REACTIONS (6)
  - Aphonia [Recovering/Resolving]
  - Liver function test abnormal [Not Recovered/Not Resolved]
  - Dysphonia [Recovering/Resolving]
  - Cough [Recovering/Resolving]
  - Dyspnoea [Recovering/Resolving]
  - Pulmonary function test decreased [Recovering/Resolving]
